FAERS Safety Report 21032664 (Version 2)
Quarter: 2022Q3

REPORT INFORMATION
  Report Type: Report from Study
  Country: US (occurrence: US)
  Receive Date: 20220701
  Receipt Date: 20220706
  Transmission Date: 20221027
  Serious: Yes (Hospitalization, Other)
  Sender: FDA-Public Use
  Company Number: US-BRISTOL-MYERS SQUIBB COMPANY-2022-063471

PATIENT
  Age: 26 Year
  Sex: Male
  Weight: 63 kg

DRUGS (4)
  1. NIVOLUMAB [Suspect]
     Active Substance: NIVOLUMAB
     Indication: Hodgkin^s disease
     Dosage: ON DAYS 1 AND 15 IN 28 DAY CYCLE
     Route: 042
     Dates: start: 20211207, end: 20220419
  2. VINBLASTINE SULFATE [Suspect]
     Active Substance: VINBLASTINE SULFATE
     Indication: Hodgkin^s disease
     Dosage: ON DAYS 1 AND 15 IN 28 DAY CYCLE
     Route: 042
     Dates: start: 20211207, end: 20220419
  3. DACARBAZINE [Suspect]
     Active Substance: DACARBAZINE
     Indication: Hodgkin^s disease
     Dosage: ON DAYS 1 AND 15 IN 28 DAY CYCLE
     Route: 042
     Dates: start: 20211207, end: 20220419
  4. DOXORUBICIN HYDROCHLORIDE [Suspect]
     Active Substance: DOXORUBICIN HYDROCHLORIDE
     Indication: Hodgkin^s disease
     Dosage: ON DAYS 1 AND 15 IN 28 DAY CYCLE
     Route: 042
     Dates: start: 20211207, end: 20220419

REACTIONS (2)
  - Palpitations [Recovered/Resolved]
  - Pulmonary embolism [Recovering/Resolving]

NARRATIVE: CASE EVENT DATE: 20220429
